FAERS Safety Report 15747694 (Version 1)
Quarter: 2018Q4

REPORT INFORMATION
  Report Type: Spontaneous
  Country: DE (occurrence: DE)
  Receive Date: 20181221
  Receipt Date: 20181221
  Transmission Date: 20190205
  Serious: Yes (Hospitalization, Other)
  Sender: FDA-Public Use
  Company Number: DE-ASTRAZENECA-2018SF64352

PATIENT
  Sex: Female
  Weight: 135 kg

DRUGS (6)
  1. OMEP [Suspect]
     Active Substance: OMEPRAZOLE
     Dosage: FOR YEARS
     Route: 048
  2. INDAPAMIDE. [Suspect]
     Active Substance: INDAPAMIDE
     Dosage: FOR YEARS
     Route: 065
  3. VALSARTAN. [Suspect]
     Active Substance: VALSARTAN
     Route: 065
  4. MAXIM (PROTRIPTYLINE HYDROCHLORIDE) [Suspect]
     Active Substance: PROTRIPTYLINE HYDROCHLORIDE
     Indication: CHEMICAL CONTRACEPTION
     Route: 065
     Dates: start: 2000
  5. DOXAZOSIN [Suspect]
     Active Substance: DOXAZOSIN\DOXAZOSIN MESYLATE
     Dosage: FOR YEARS
     Route: 065
  6. METOPROLOL TARTRATE. [Suspect]
     Active Substance: METOPROLOL TARTRATE
     Dosage: FOR YEARS
     Route: 065

REACTIONS (2)
  - Deep vein thrombosis [Unknown]
  - Thrombophlebitis [Unknown]

NARRATIVE: CASE EVENT DATE: 20180801
